FAERS Safety Report 9801825 (Version 1)
Quarter: 2014Q1

REPORT INFORMATION
  Report Type: Spontaneous
  Country: FR (occurrence: FR)
  Receive Date: 20140107
  Receipt Date: 20140107
  Transmission Date: 20141002
  Serious: Yes (Hospitalization)
  Sender: FDA-Public Use
  Company Number: FR-ABBVIE-14P-056-1185515-00

PATIENT
  Age: 71 Year
  Sex: Male

DRUGS (7)
  1. NORVIR [Suspect]
     Indication: HIV INFECTION
     Dates: end: 20131130
  2. DOCETAXEL [Interacting]
     Indication: BLADDER CANCER
     Dates: start: 20131011, end: 20131011
  3. CARBOPLATINE [Interacting]
     Indication: BLADDER CANCER
     Dates: start: 20131011
  4. PREZISTA [Interacting]
     Indication: HIV INFECTION
     Dates: end: 20131130
  5. INTELENCE [Concomitant]
     Indication: HIV INFECTION
  6. ZOPHREN [Interacting]
     Indication: BLADDER CANCER
     Dates: start: 20131011
  7. SOLUMEDROL [Interacting]
     Indication: BLADDER CANCER
     Dates: start: 20131011

REACTIONS (5)
  - Thrombocytopenia [Recovered/Resolved]
  - Agranulocytosis [Recovered/Resolved]
  - Palmar-plantar erythrodysaesthesia syndrome [Recovered/Resolved]
  - Toxic skin eruption [Recovered/Resolved]
  - Drug interaction [Recovered/Resolved]
